FAERS Safety Report 24953678 (Version 1)
Quarter: 2025Q1

REPORT INFORMATION
  Report Type: Spontaneous
  Country: NO (occurrence: NO)
  Receive Date: 20250211
  Receipt Date: 20250211
  Transmission Date: 20250408
  Serious: Yes (Other)
  Sender: AMGEN
  Company Number: NO-AMGEN-NORSP2025023621

PATIENT

DRUGS (8)
  1. CARFILZOMIB [Suspect]
     Active Substance: CARFILZOMIB
     Indication: Plasma cell myeloma refractory
     Route: 040
  2. CARFILZOMIB [Suspect]
     Active Substance: CARFILZOMIB
     Dosage: 56 MILLIGRAM/SQ. METER, QWK/ DL1-4
     Route: 040
  3. CARFILZOMIB [Suspect]
     Active Substance: CARFILZOMIB
     Dosage: 70 MILLIGRAM/SQ. METER, QWK/ [DL5] ON DAYS 1, 8, AND 15)
     Route: 040
  4. DEXAMETHASONE [Suspect]
     Active Substance: DEXAMETHASONE
     Indication: Plasma cell myeloma refractory
     Dosage: 40 MILLIGRAM, QD, ON DAYS 1, 8, 15, AND 22, 20 MG
     Route: 048
  5. HYDROXYCHLOROQUINE [Suspect]
     Active Substance: HYDROXYCHLOROQUINE
     Indication: Plasma cell myeloma refractory
     Dosage: 200 MILLIGRAM, QD
     Route: 065
  6. BORTEZOMIB [Concomitant]
     Active Substance: BORTEZOMIB
     Indication: Plasma cell myeloma refractory
     Route: 065
  7. IXAZOMIB [Concomitant]
     Active Substance: IXAZOMIB
     Indication: Plasma cell myeloma refractory
     Route: 065
  8. DARATUMUMAB [Concomitant]
     Active Substance: DARATUMUMAB
     Indication: Plasma cell myeloma refractory
     Route: 065

REACTIONS (54)
  - Platelet count decreased [Unknown]
  - Neutropenia [Unknown]
  - Cardiac failure [Unknown]
  - Neutrophil count decreased [Unknown]
  - Nausea [Unknown]
  - Posterior capsule opacification [Unknown]
  - Neuropathy peripheral [Unknown]
  - Anaemia [Unknown]
  - White blood cell count decreased [Unknown]
  - Lymphopenia [Unknown]
  - Haemolytic uraemic syndrome [Unknown]
  - Respiratory tract infection [Unknown]
  - Leukaemia granulocytic [Unknown]
  - Angina pectoris [Unknown]
  - Electrocardiogram QT prolonged [Unknown]
  - Sialoadenitis [Unknown]
  - Chest pain [Unknown]
  - Insomnia [Unknown]
  - Bone pain [Unknown]
  - Plasma cell myeloma refractory [Unknown]
  - Rectal haemorrhage [Unknown]
  - Thermal burn [Unknown]
  - Thrombocytopenia [Unknown]
  - Febrile neutropenia [Unknown]
  - Pneumonia [Unknown]
  - Retinopathy [Unknown]
  - Leukopenia [Unknown]
  - Vomiting [Unknown]
  - Abdominal discomfort [Unknown]
  - Dyspepsia [Unknown]
  - COVID-19 [Unknown]
  - Tooth infection [Unknown]
  - Urinary tract infection [Unknown]
  - Palpitations [Unknown]
  - Dyspnoea [Unknown]
  - Dysphonia [Unknown]
  - Headache [Unknown]
  - Costal cartilage fracture [Unknown]
  - Peripheral sensory neuropathy [Unknown]
  - Anxiety [Unknown]
  - Restlessness [Unknown]
  - Oedema [Unknown]
  - Vision blurred [Unknown]
  - Blood alkaline phosphatase increased [Unknown]
  - Haematoma [Unknown]
  - Hypoacusis [Unknown]
  - Eczema [Unknown]
  - Night sweats [Unknown]
  - Epistaxis [Unknown]
  - Diarrhoea [Unknown]
  - Hypoacusis [Unknown]
  - Pain [Unknown]
  - Hyperglycaemia [Unknown]
  - Therapy partial responder [Unknown]
